FAERS Safety Report 15452857 (Version 1)
Quarter: 2018Q4

REPORT INFORMATION
  Report Type: Spontaneous
  Country: SK (occurrence: SK)
  Receive Date: 20181001
  Receipt Date: 20181001
  Transmission Date: 20190204
  Serious: Yes (Death, Hospitalization)
  Sender: FDA-Public Use
  Company Number: SK-BAYER-2018-178019

PATIENT
  Age: 81 Year
  Sex: Female

DRUGS (11)
  1. BISOPROLOL [Suspect]
     Active Substance: BISOPROLOL
  2. VALSARTAN AND HYDROCHLOROTHIAZIDE [Suspect]
     Active Substance: HYDROCHLOROTHIAZIDE\VALSARTAN
  3. AMLODIPINE BESILATE [Suspect]
     Active Substance: AMLODIPINE BESYLATE
  4. SIOFOR [Suspect]
     Active Substance: METFORMIN HYDROCHLORIDE
     Indication: DIABETES MELLITUS
     Dosage: 850 MG, UNK
     Route: 048
  5. METFORMIN [Suspect]
     Active Substance: METFORMIN HYDROCHLORIDE
  6. TROSPIUM CHLORIDE. [Suspect]
     Active Substance: TROSPIUM CHLORIDE
  7. ATORVASTATIN CALCIUM. [Suspect]
     Active Substance: ATORVASTATIN CALCIUM
     Dosage: 20 MG, UNK
  8. MOXOSTAD [Suspect]
     Active Substance: MOXONIDINE
  9. BAYER ASPIRIN [Suspect]
     Active Substance: ASPIRIN
  10. EUTHYROX [Suspect]
     Active Substance: LEVOTHYROXINE SODIUM
  11. MIRABEGRON [Suspect]
     Active Substance: MIRABEGRON

REACTIONS (5)
  - Lactic acidosis [Fatal]
  - Renal failure [Unknown]
  - Urinary retention [Unknown]
  - Anuria [Unknown]
  - Acute kidney injury [Fatal]
